FAERS Safety Report 7872630-6 (Version None)
Quarter: 2011Q4

REPORT INFORMATION
  Report Type: 
  Country: None (occurrence: None)
  Receive Date: 20111030
  Receipt Date: 20110430
  Transmission Date: 20120403
  Serious: No
  Sender: FDA-Public Use
  Company Number: US-AMGEN-USASP2011022544

PATIENT

DRUGS (4)
  1. ENBREL [Suspect]
     Indication: PSORIASIS
     Dosage: 50 MG, QWK
     Dates: start: 20030101
  2. LOPRESSOR [Concomitant]
  3. CRESTOR [Concomitant]
  4. LOVAZA [Concomitant]

REACTIONS (2)
  - PLATELET COUNT INCREASED [None]
  - DRUG INEFFECTIVE [None]
